FAERS Safety Report 10901087 (Version 2)
Quarter: 2015Q1

REPORT INFORMATION
  Report Type: Spontaneous
  Country: BR (occurrence: BR)
  Receive Date: 20150310
  Receipt Date: 20150319
  Transmission Date: 20150721
  Serious: Yes (Other)
  Sender: FDA-Public Use
  Company Number: BR-JNJFOC-20150219788

PATIENT
  Age: 48 Year
  Sex: Male

DRUGS (13)
  1. RISPERIDONE. [Suspect]
     Active Substance: RISPERIDONE
     Indication: PSYCHOTIC DISORDER
     Route: 048
  2. PAROXETINE [Suspect]
     Active Substance: PAROXETINE\PAROXETINE HYDROCHLORIDE
     Indication: PSYCHOTIC DISORDER
     Route: 065
  3. PAROXETINE [Suspect]
     Active Substance: PAROXETINE\PAROXETINE HYDROCHLORIDE
     Indication: PERSECUTORY DELUSION
     Route: 065
  4. RISPERIDONE. [Suspect]
     Active Substance: RISPERIDONE
     Indication: PERSECUTORY DELUSION
     Route: 048
  5. PAROXETINE [Suspect]
     Active Substance: PAROXETINE\PAROXETINE HYDROCHLORIDE
     Indication: POST-TRAUMATIC STRESS DISORDER
     Route: 065
  6. HYDROCHLOROTHIAZIDE. [Interacting]
     Active Substance: HYDROCHLOROTHIAZIDE
     Indication: HYPERTENSION
     Route: 065
  7. RISPERIDONE. [Suspect]
     Active Substance: RISPERIDONE
     Indication: POST-TRAUMATIC STRESS DISORDER
     Route: 048
  8. RISPERIDONE. [Suspect]
     Active Substance: RISPERIDONE
     Indication: POST-TRAUMATIC STRESS DISORDER
     Route: 048
  9. RISPERIDONE. [Suspect]
     Active Substance: RISPERIDONE
     Indication: PERSECUTORY DELUSION
     Route: 048
  10. RISPERIDONE. [Suspect]
     Active Substance: RISPERIDONE
     Indication: PSYCHOTIC DISORDER
     Route: 048
  11. RISPERIDONE. [Suspect]
     Active Substance: RISPERIDONE
     Indication: PERSECUTORY DELUSION
     Route: 048
  12. RISPERIDONE. [Suspect]
     Active Substance: RISPERIDONE
     Indication: POST-TRAUMATIC STRESS DISORDER
     Route: 048
  13. RISPERIDONE. [Suspect]
     Active Substance: RISPERIDONE
     Indication: PSYCHOTIC DISORDER
     Route: 048

REACTIONS (3)
  - Electrocardiogram QT prolonged [Recovering/Resolving]
  - Hypokalaemia [Recovering/Resolving]
  - Drug interaction [Recovering/Resolving]
